FAERS Safety Report 17354687 (Version 1)
Quarter: 2020Q1

REPORT INFORMATION
  Report Type: Report from Study
  Country: GB (occurrence: GB)
  Receive Date: 20200131
  Receipt Date: 20200131
  Transmission Date: 20200409
  Serious: Yes (Hospitalization)
  Sender: FDA-Public Use
  Company Number: GB-GLAXOSMITHKLINE-GB2020EME016476

PATIENT

DRUGS (1)
  1. MEPOLIZUMAB [Suspect]
     Active Substance: MEPOLIZUMAB
     Indication: ASTHMA
     Dosage: UNK

REACTIONS (8)
  - Asthma [Recovered/Resolved]
  - Nausea [Unknown]
  - Neck pain [Unknown]
  - Hospitalisation [Unknown]
  - Ill-defined disorder [Unknown]
  - Pain in extremity [Unknown]
  - Migraine [Unknown]
  - Musculoskeletal pain [Unknown]
